FAERS Safety Report 5144750-0 (Version None)
Quarter: 2006Q4

REPORT INFORMATION
  Report Type: 
  Country: None (occurrence: None)
  Receive Date: 20061107
  Receipt Date: 20061027
  Transmission Date: 20070319
  Serious: Yes (Hospitalization, Other)
  Sender: FDA-Public Use
  Company Number: GB-JNJFOC-20061006474

PATIENT
  Sex: Male
  Weight: 74 kg

DRUGS (16)
  1. REMICADE [Suspect]
     Indication: RHEUMATOID ARTHRITIS
     Route: 042
  2. SULFASALAZINE [Concomitant]
     Route: 065
  3. METHOTREXATE [Concomitant]
     Route: 065
  4. ASPIRIN [Concomitant]
     Route: 065
  5. ATENOLOL [Concomitant]
     Route: 065
  6. BECLOMETHASONE DIPROPIONATE [Concomitant]
     Route: 065
  7. CAPTOPRIL [Concomitant]
     Route: 065
  8. FROBEN [Concomitant]
     Route: 065
  9. FUROSEMIDE [Concomitant]
     Route: 065
  10. GTN SPRAY [Concomitant]
     Route: 065
  11. HYDROXYCHLOROQUINE SULFATE [Concomitant]
     Route: 065
  12. LANSOPRAZOLE [Concomitant]
     Route: 065
  13. MST [Concomitant]
     Route: 065
  14. PERINDOPRIL ERBUMINE [Concomitant]
     Route: 065
  15. PRAZOSIN HCL [Concomitant]
     Route: 065
  16. TRAMADOL HCL [Concomitant]
     Route: 065

REACTIONS (2)
  - MELAENA [None]
  - REFLUX OESOPHAGITIS [None]
